FAERS Safety Report 24894889 (Version 1)
Quarter: 2025Q1

REPORT INFORMATION
  Report Type: Spontaneous
  Country: AR (occurrence: AR)
  Receive Date: 20250128
  Receipt Date: 20250128
  Transmission Date: 20250409
  Serious: Yes (Other)
  Sender: KNIGHT THERAPEUTICS
  Company Number: AR-Knight Therapeutics (USA) Inc.-2169907

PATIENT

DRUGS (1)
  1. IMPAVIDO [Suspect]
     Active Substance: MILTEFOSINE
     Indication: Encephalitis

REACTIONS (4)
  - Nephritic syndrome [Unknown]
  - Product use in unapproved indication [Unknown]
  - Acute kidney injury [Unknown]
  - Nephrotic syndrome [Unknown]
